FAERS Safety Report 5145944-0 (Version None)
Quarter: 2006Q4

REPORT INFORMATION
  Report Type: 
  Country: None (occurrence: None)
  Receive Date: 20061108
  Receipt Date: 20061026
  Transmission Date: 20070319
  Serious: Yes (Other)
  Sender: FDA-Public Use
  Company Number: PHBS2006MX16778

PATIENT
  Age: 80 Year
  Sex: Female

DRUGS (3)
  1. TEGRETOL [Suspect]
     Indication: INFLAMMATION
     Dosage: 400 MG/DAY
     Route: 048
     Dates: start: 20060901, end: 20060901
  2. CAPTOPRIL [Concomitant]
     Indication: HYPERTENSION
     Route: 065
  3. PENTOXIFYLLINE [Concomitant]
     Route: 065

REACTIONS (2)
  - HYPERTENSION [None]
  - SOMNOLENCE [None]
